FAERS Safety Report 20676932 (Version 2)
Quarter: 2022Q2

REPORT INFORMATION
  Report Type: Report from Study
  Country: US (occurrence: US)
  Receive Date: 20220406
  Receipt Date: 20220531
  Transmission Date: 20220721
  Serious: No
  Sender: FDA-Public Use
  Company Number: US-ABBVIE-22K-163-4259332-00

PATIENT
  Age: 66 Year
  Sex: Female
  Weight: 90.800 kg

DRUGS (5)
  1. RINVOQ [Suspect]
     Active Substance: UPADACITINIB
     Indication: Rheumatoid arthritis
     Route: 048
     Dates: start: 202106
  2. RINVOQ [Suspect]
     Active Substance: UPADACITINIB
     Route: 048
  3. MODERNA COVID-19 VACCINE [Concomitant]
     Active Substance: ELASOMERAN
     Indication: COVID-19 immunisation
     Route: 030
     Dates: start: 20210303, end: 20210303
  4. MODERNA COVID-19 VACCINE [Concomitant]
     Active Substance: ELASOMERAN
     Route: 030
     Dates: start: 20210331, end: 20210331
  5. MODERNA COVID-19 VACCINE [Concomitant]
     Active Substance: ELASOMERAN
     Route: 030
     Dates: start: 20211116, end: 20211116

REACTIONS (4)
  - Platelet count decreased [Unknown]
  - COVID-19 [Unknown]
  - Haemoglobin decreased [Unknown]
  - Asthenia [Not Recovered/Not Resolved]

NARRATIVE: CASE EVENT DATE: 20210901
